FAERS Safety Report 18083368 (Version 3)
Quarter: 2020Q3

REPORT INFORMATION
  Report Type: Spontaneous
  Country: PT (occurrence: PT)
  Receive Date: 20200728
  Receipt Date: 20200902
  Transmission Date: 20201103
  Serious: Yes (Hospitalization)
  Sender: FDA-Public Use
  Company Number: PT-ROCHE-2647956

PATIENT
  Age: 55 Year
  Sex: Male
  Weight: 70 kg

DRUGS (3)
  1. CAPECITABINA [Suspect]
     Active Substance: CAPECITABINE
     Indication: ADENOCARCINOMA OF COLON
     Dosage: 3 COMP 500MG +1 COMP 150MG ? PA+ 3 COMP DE 500MG + 1 COMP DE150MG JANTAR DURANTE 14 DIAS
     Route: 048
     Dates: start: 20200430
  2. CAPECITABINA [Suspect]
     Active Substance: CAPECITABINE
     Dosage: 3 COMP 500MG +1 COMP 150MG ? PA+ 3 COMP DE 500MG + 1 COMP DE150MG JANTAR DURANTE 14 DIAS
     Route: 048
     Dates: start: 20200430
  3. OXALIPLATIN. [Concomitant]
     Active Substance: OXALIPLATIN

REACTIONS (2)
  - Gastrointestinal inflammation [Recovered/Resolved]
  - Enterocolitis [Recovered/Resolved]

NARRATIVE: CASE EVENT DATE: 20200516
